FAERS Safety Report 5191176-X (Version None)
Quarter: 2006Q4

REPORT INFORMATION
  Report Type: 
  Country: None (occurrence: None)
  Receive Date: 20061218
  Receipt Date: 20061207
  Transmission Date: 20070319
  Serious: Yes (Other)
  Sender: FDA-Public Use
  Company Number: 2006150554

PATIENT
  Age: 64 Year
  Sex: Female

DRUGS (12)
  1. LYRICA [Suspect]
     Dosage: 75 MG, 2 IN 1 D
  2. NEURONTIN [Suspect]
  3. TRAMADOL HCL [Concomitant]
  4. ENDEP [Concomitant]
  5. EPILIM (VALPROATE SODIUM) [Concomitant]
  6. LEVOTHYROXINE SODIUM [Concomitant]
  7. OGEN [Concomitant]
  8. PANADEINE FORTE (CODEINE PHOSPHATE, PARACETAMOL) [Concomitant]
  9. OSTEO (ASCORBIC ACID, CALCIUM, MAGNESIUM, SILICONES NOS, VITAMIN D NOS [Concomitant]
  10. COSOPT [Concomitant]
  11. LUMIGAN (BIMATROPOST) [Concomitant]
  12. ANAPROX [Concomitant]

REACTIONS (9)
  - DEPRESSION [None]
  - DYSSTASIA [None]
  - FATIGUE [None]
  - HEADACHE [None]
  - MUSCLE DISORDER [None]
  - MUSCULOSKELETAL CHEST PAIN [None]
  - PAIN [None]
  - PAIN IN EXTREMITY [None]
  - SPEECH DISORDER [None]
